FAERS Safety Report 15865869 (Version 1)
Quarter: 2019Q1

REPORT INFORMATION
  Report Type: Report from Study
  Country: CA (occurrence: CA)
  Receive Date: 20190125
  Receipt Date: 20190125
  Transmission Date: 20190417
  Serious: Yes (Other)
  Sender: FDA-Public Use
  Company Number: CA-TEVA-2019-CA-1003131

PATIENT
  Age: 57 Year
  Sex: Male

DRUGS (2)
  1. MEPOLIZUMAB [Suspect]
     Active Substance: MEPOLIZUMAB
     Indication: ASTHMA
     Route: 042
  2. PREDNISONE. [Suspect]
     Active Substance: PREDNISONE
     Route: 065

REACTIONS (8)
  - Ill-defined disorder [Unknown]
  - General physical health deterioration [Unknown]
  - Pain [Unknown]
  - Cardiac disorder [Unknown]
  - Chest pain [Unknown]
  - Insomnia [Unknown]
  - Atrial fibrillation [Unknown]
  - Withdrawal syndrome [Unknown]
